FAERS Safety Report 8561627 (Version 2)
Quarter: 2012Q4

REPORT INFORMATION
  Report Type: 
  Country: US (occurrence: US)
  Receive Date: 20120515
  Receipt Date: 20121220
  Transmission Date: 20130627
  Serious: No
  Sender: FDA-Public Use
  Company Number: US-BIOGENIDEC-2012BI016475

PATIENT
  Sex: Female

DRUGS (1)
  1. TYSABRI [Suspect]
     Indication: MULTIPLE SCLEROSIS
     Route: 042
     Dates: start: 20110404

REACTIONS (6)
  - Anxiety [Not Recovered/Not Resolved]
  - Gait disturbance [Recovered/Resolved]
  - Dysmenorrhoea [Recovered/Resolved]
  - Thrombosis [Not Recovered/Not Resolved]
  - Metrorrhagia [Not Recovered/Not Resolved]
  - Drug effect decreased [Recovered/Resolved]
